FAERS Safety Report 4283898-X (Version None)
Quarter: 2004Q1

REPORT INFORMATION
  Report Type: 
  Country: None (occurrence: None)
  Receive Date: 20040130
  Receipt Date: 20040115
  Transmission Date: 20041129
  Serious: Yes (Death, Hospitalization)
  Sender: FDA-Public Use
  Company Number: WAES 0311USA01110

PATIENT
  Age: 66 Year
  Sex: Male

DRUGS (3)
  1. ZOCOR [Suspect]
     Indication: HYPERLIPIDAEMIA
     Dosage: 5 MG/DAILY
     Route: 048
     Dates: start: 19930329, end: 19991001
  2. IBUDILAST [Concomitant]
  3. NIFEDIPINE [Concomitant]

REACTIONS (2)
  - GASTRIC CANCER [None]
  - WEIGHT DECREASED [None]
